FAERS Safety Report 9105027 (Version 2)
Quarter: 2013Q1

REPORT INFORMATION
  Report Type: Spontaneous
  Country: JP (occurrence: JP)
  Receive Date: 20130220
  Receipt Date: 20130307
  Transmission Date: 20140127
  Serious: Yes (Hospitalization, Other)
  Sender: FDA-Public Use
  Company Number: JP-PFIZER INC-2013062628

PATIENT
  Age: 68 Year
  Sex: Female

DRUGS (3)
  1. ATENOLOL [Suspect]
     Indication: HYPERTENSION
     Dosage: 25 MG, UNK
     Route: 048
  2. ATENOLOL [Interacting]
     Dosage: 12.5 MG, DAILY
     Route: 048
     Dates: start: 20130201, end: 20130203
  3. RYTHMODAN [Interacting]
     Dosage: 300 MG, DAILY
     Route: 048
     Dates: start: 20130201, end: 20130203

REACTIONS (3)
  - Drug interaction [Unknown]
  - Electrolyte imbalance [Unknown]
  - Bradycardia [Recovering/Resolving]
